FAERS Safety Report 8545322-8 (Version None)
Quarter: 2012Q3

REPORT INFORMATION
  Report Type: 
  Country: None (occurrence: None)
  Receive Date: 20120727
  Receipt Date: 20120720
  Transmission Date: 20120928
  Serious: Yes (Other)
  Sender: FDA-Public Use
  Company Number: GB-ABBOTT-12P-167-0955928-00

PATIENT
  Age: 51 Year
  Sex: Male

DRUGS (3)
  1. VALPROATE SODIUM [Suspect]
     Indication: EPILEPSY
     Dosage: UNKNOWN
     Route: 048
  2. MIDAZOLAM [Concomitant]
     Indication: PRODUCT USED FOR UNKNOWN INDICATION
  3. THIAMINE [Concomitant]
     Indication: PRODUCT USED FOR UNKNOWN INDICATION

REACTIONS (2)
  - CONVULSION [None]
  - DRUG DOSE OMISSION [None]
